FAERS Safety Report 11230055 (Version 1)
Quarter: 2015Q3

REPORT INFORMATION
  Report Type: Spontaneous
  Country: US (occurrence: US)
  Receive Date: 20150701
  Receipt Date: 20150701
  Transmission Date: 20151125
  Serious: Yes (Hospitalization)
  Sender: FDA-Public Use
  Company Number: US-UCBSA-2015021104

PATIENT
  Age: 52 Year
  Sex: Male

DRUGS (1)
  1. KEPPRA [Suspect]
     Active Substance: LEVETIRACETAM
     Indication: SEIZURE
     Dosage: UNKNOWN

REACTIONS (5)
  - Seizure [Unknown]
  - Contusion [Unknown]
  - Gait disturbance [Unknown]
  - Memory impairment [Unknown]
  - Fall [Unknown]

NARRATIVE: CASE EVENT DATE: 20141016
